FAERS Safety Report 9738401 (Version 3)
Quarter: 2014Q1

REPORT INFORMATION
  Report Type: Spontaneous
  Country: IT (occurrence: IT)
  Receive Date: 20131208
  Receipt Date: 20140124
  Transmission Date: 20141002
  Serious: Yes (Hospitalization)
  Sender: FDA-Public Use
  Company Number: IT-ROCHE-1312026

PATIENT
  Age: 62 Year
  Sex: Female

DRUGS (5)
  1. RIVOTRIL [Suspect]
     Indication: PERSONALITY DISORDER
     Route: 048
     Dates: start: 20060101, end: 20080102
  2. ABILIFY [Suspect]
     Indication: PERSONALITY DISORDER
     Route: 048
     Dates: start: 20070601, end: 20080102
  3. ABILIFY [Suspect]
     Route: 048
  4. LORAZEPAM [Concomitant]
     Indication: PERSONALITY DISORDER
     Route: 048
  5. MYSOLINE [Concomitant]
     Route: 048

REACTIONS (1)
  - Extrapyramidal disorder [Recovering/Resolving]
